FAERS Safety Report 8342300 (Version 2)
Quarter: 2013Q3

REPORT INFORMATION
  Report Type: Spontaneous
  Country: PR (occurrence: US)
  Receive Date: 20120118
  Receipt Date: 20130904
  Transmission Date: 20140515
  Serious: Yes (Hospitalization)
  Sender: FDA-Public Use
  Company Number: US-B.I. PHARMACEUTICALS,INC./RIDGEFIELD-2012-BP-00840BP

PATIENT
  Age: 64 Year
  Sex: Female

DRUGS (8)
  1. PRADAXA [Suspect]
     Indication: ATRIAL FIBRILLATION
     Dosage: 300 MG
     Route: 048
     Dates: start: 201103
  2. ATENOLOL [Concomitant]
     Dosage: 100 MG
     Route: 048
  3. DIOVAN [Concomitant]
     Dosage: 160 MG
     Route: 048
  4. SYNTHROID [Concomitant]
     Dosage: 75 MCG
     Route: 048
  5. PROTONIX [Concomitant]
     Dosage: 40 MG
     Route: 048
  6. ZANTAC [Concomitant]
     Dosage: 150 MG
     Route: 048
  7. LYRICA [Concomitant]
     Dosage: 50 MG
     Route: 048
  8. AMARYL [Concomitant]
     Dosage: 0.5 MG
     Route: 048

REACTIONS (4)
  - Coronary artery disease [Unknown]
  - Fall [Recovered/Resolved]
  - Skin lesion [Not Recovered/Not Resolved]
  - Myalgia [Not Recovered/Not Resolved]
